FAERS Safety Report 8605662-0 (Version None)
Quarter: 2012Q3

REPORT INFORMATION
  Report Type: 
  Country: None (occurrence: None)
  Receive Date: 20120820
  Receipt Date: 20120810
  Transmission Date: 20120928
  Serious: Yes (Hospitalization)
  Sender: FDA-Public Use
  Company Number: US-ASTRAZENECA-2011SE38538

PATIENT
  Age: 71 Year
  Sex: Female

DRUGS (2)
  1. REGLAN [Concomitant]
  2. NEXIUM [Suspect]
     Route: 048

REACTIONS (11)
  - INTENTIONAL DRUG MISUSE [None]
  - DRUG DOSE OMISSION [None]
  - DYSPEPSIA [None]
  - REGURGITATION [None]
  - PAIN [None]
  - BURNING SENSATION [None]
  - GASTRIC DISORDER [None]
  - INSOMNIA [None]
  - VOMITING [None]
  - IMPAIRED GASTRIC EMPTYING [None]
  - MUSCULAR WEAKNESS [None]
